FAERS Safety Report 13714423 (Version 2)
Quarter: 2017Q3

REPORT INFORMATION
  Report Type: Spontaneous
  Country: ES (occurrence: ES)
  Receive Date: 20170704
  Receipt Date: 20170706
  Transmission Date: 20171127
  Serious: Yes (Other)
  Sender: FDA-Public Use
  Company Number: ES-JNJFOC-20170628210

PATIENT
  Sex: Male

DRUGS (7)
  1. STILNOX [Concomitant]
     Active Substance: ZOLPIDEM TARTRATE
     Indication: SLEEP DISORDER
     Dosage: DOSAGE FREQUENCY: 1/2 TABLET AT NIGHT
     Route: 065
  2. TROMALYT [Concomitant]
     Active Substance: ASPIRIN
     Dosage: DOSE: 300 UNITS NOT PROVIDED
     Route: 065
  3. KEPPRA [Concomitant]
     Active Substance: LEVETIRACETAM
     Indication: EPILEPSY
     Dosage: DOSAGE FREQUENCY: 1/2 IN THE MORNING AND 1 AT NIGHT PER DAY.
     Route: 065
  4. ATACAND [Concomitant]
     Active Substance: CANDESARTAN CILEXETIL
     Route: 065
  5. ZYTIGA [Suspect]
     Active Substance: ABIRATERONE ACETATE
     Indication: PROSTATE CANCER METASTATIC
     Route: 048
     Dates: start: 20160811
  6. ATORVASTATIN [Concomitant]
     Active Substance: ATORVASTATIN
     Route: 065
  7. DECAPEPTYL [Concomitant]
     Active Substance: TRIPTORELIN
     Route: 065
     Dates: start: 2015

REACTIONS (1)
  - Haematoma [Unknown]
